FAERS Safety Report 7691910-0 (Version None)
Quarter: 2011Q3

REPORT INFORMATION
  Report Type: 
  Country: None (occurrence: None)
  Receive Date: 20110818
  Receipt Date: 20110809
  Transmission Date: 20111222
  Serious: Yes (Other)
  Sender: FDA-Public Use
  Company Number: US-ASTRAZENECA-2011SE47552

PATIENT
  Age: 48 Year
  Sex: Female
  Weight: 63.5 kg

DRUGS (22)
  1. FEMHRT [Concomitant]
     Indication: HORMONE THERAPY
  2. TRAZODONE HCL [Concomitant]
     Indication: SLEEP DISORDER
  3. TOPAMAX [Concomitant]
     Indication: CONVULSION
  4. EFFEXOR XR [Suspect]
     Indication: BIPOLAR DISORDER
     Route: 048
     Dates: end: 20110101
  5. EFFEXOR XR [Suspect]
     Route: 048
     Dates: start: 20110617
  6. DURAGESIC-100 [Concomitant]
     Indication: PAIN
     Route: 062
  7. KLONOPIN [Concomitant]
  8. PRILOSEC [Concomitant]
  9. TOPAMAX [Concomitant]
     Indication: HEADACHE
  10. SIMVASTATIN [Concomitant]
  11. SEROQUEL [Suspect]
     Route: 048
  12. CHANTIX [Suspect]
     Indication: SMOKING CESSATION THERAPY
     Route: 048
     Dates: start: 20110603
  13. CHANTIX [Suspect]
     Route: 048
     Dates: start: 20110603
  14. CALCIMAX [Suspect]
     Indication: WEIGHT DECREASED
  15. OXYCODONE HCL [Concomitant]
     Indication: PAIN
     Dosage: 10/3.25 MG TWO TABLET TWO TIMES A DAY AS NEEDED
  16. VITAMIN B COMPLEX CAP [Concomitant]
  17. LEVOTHYROXINE SODIUM [Concomitant]
  18. ACETYLSALICYLIC ACID SRT [Concomitant]
  19. ZOLOFT [Suspect]
     Indication: DEPRESSION
  20. GEMFIBROZIL [Concomitant]
  21. GABAPENTIN [Concomitant]
  22. ARICEPT [Concomitant]
     Indication: SLEEP DISORDER

REACTIONS (12)
  - WEIGHT INCREASED [None]
  - NAUSEA [None]
  - ABDOMINAL PAIN [None]
  - HYPOTHYROIDISM [None]
  - DEPRESSED MOOD [None]
  - NIGHTMARE [None]
  - ABNORMAL DREAMS [None]
  - WEIGHT DECREASED [None]
  - BIPOLAR DISORDER [None]
  - MEMORY IMPAIRMENT [None]
  - FATIGUE [None]
  - MALAISE [None]
